FAERS Safety Report 4524579-4 (Version None)
Quarter: 2004Q4

REPORT INFORMATION
  Report Type: 
  Country: None (occurrence: None)
  Receive Date: 20041117
  Receipt Date: 20040629
  Transmission Date: 20050328
  Serious: Yes (Hospitalization)
  Sender: FDA-Public Use
  Company Number: US-JNJFOC-20040704878

PATIENT
  Age: 73 Year
  Sex: Female

DRUGS (9)
  1. LEVOFLOXACIN [Suspect]
     Indication: DRUG USE FOR UNKNOWN INDICATION
     Dosage: 500 MG, 1 IN 1 DAY, ORAL
     Route: 048
     Dates: start: 20010717, end: 20040719
  2. TIKOSYN [Suspect]
     Indication: DRUG USE FOR UNKNOWN INDICATION
     Dosage: 250 UG, 1 IN 1 DAY  ;  375 UG, 2 IN 1 TOTAL  :  ORAL
     Route: 048
     Dates: end: 20010718
  3. TIKOSYN [Suspect]
     Indication: DRUG USE FOR UNKNOWN INDICATION
     Dosage: 250 UG, 1 IN 1 DAY  ;  375 UG, 2 IN 1 TOTAL  :  ORAL
     Route: 048
     Dates: start: 20010717
  4. DILTIAZEM [Concomitant]
  5. ENOXAPARIN SODIUM [Concomitant]
  6. ETHINYL ESTRADIOL (ETHINYLESTRADIOL) TABLETS [Concomitant]
  7. HYDROCHLOROTHIAZIDE [Concomitant]
  8. LANSOPRAZOLE [Concomitant]
  9. WARFARIN SODIUM [Concomitant]

REACTIONS (2)
  - ELECTROCARDIOGRAM QT PROLONGED [None]
  - TORSADE DE POINTES [None]
